FAERS Safety Report 9179162 (Version 1)
Quarter: 2013Q1

REPORT INFORMATION
  Report Type: Spontaneous
  Country: US (occurrence: US)
  Receive Date: 20130321
  Receipt Date: 20130321
  Transmission Date: 20140127
  Serious: Yes (Death)
  Sender: FDA-Public Use
  Company Number: US-GLAXOSMITHKLINE-A1015809A

PATIENT
  Age: 72 Year
  Sex: Male

DRUGS (6)
  1. VOTRIENT [Suspect]
     Indication: RENAL CANCER METASTATIC
     Dosage: 600MG PER DAY
     Route: 048
     Dates: start: 201112
  2. LOSARTAN [Concomitant]
  3. SPIRONOLACTONE [Concomitant]
  4. NIFEDIPINE [Concomitant]
  5. LEVOTHYROXINE [Concomitant]
  6. ATENOLOL [Concomitant]

REACTIONS (1)
  - Disease progression [Fatal]
